FAERS Safety Report 7341342-X (Version None)
Quarter: 2011Q1

REPORT INFORMATION
  Report Type: 
  Country: None (occurrence: None)
  Receive Date: 20110309
  Receipt Date: 20110228
  Transmission Date: 20110831
  Serious: Yes (Hospitalization, Congenital Anomaly, Other)
  Sender: FDA-Public Use
  Company Number: FR-WATSON-2011-01855

PATIENT
  Sex: Female

DRUGS (2)
  1. BUPRENORPHINE [Suspect]
     Indication: PAIN
     Dosage: 0.2 MG/KG, DAILY
     Route: 064
  2. MORPHINE SULFATE [Suspect]
     Indication: DRUG WITHDRAWAL SYNDROME
     Dosage: 0.5 MG/KG, DAILY

REACTIONS (4)
  - CONVULSION NEONATAL [None]
  - DRUG WITHDRAWAL SYNDROME [None]
  - DRUG WITHDRAWAL CONVULSIONS [None]
  - FOETAL GROWTH RESTRICTION [None]
